FAERS Safety Report 4899440-6 (Version None)
Quarter: 2006Q1

REPORT INFORMATION
  Report Type: 
  Country: None (occurrence: None)
  Receive Date: 20060131
  Receipt Date: 20060116
  Transmission Date: 20060701
  Serious: Yes (Hospitalization)
  Sender: FDA-Public Use
  Company Number: 13285

PATIENT
  Age: 45 Year
  Sex: Male

DRUGS (4)
  1. PACLITAXEL [Suspect]
     Dosage: 350 MG IV
     Route: 042
     Dates: start: 20051112, end: 20051222
  2. SOLU-MEDROL [Concomitant]
  3. TAVEGYL /00137201/ [Concomitant]
  4. ZANTAC [Concomitant]

REACTIONS (3)
  - ABDOMINAL PAIN UPPER [None]
  - FLUSHING [None]
  - INFUSION RELATED REACTION [None]
